FAERS Safety Report 8761283 (Version 1)
Quarter: 2012Q4

REPORT INFORMATION
  Report Type: 
  Country: CA (occurrence: CA)
  Receive Date: 20120830
  Receipt Date: 20120830
  Transmission Date: 20130627
  Serious: Yes (Hospitalization, Other)
  Sender: FDA-Public Use
  Company Number: CA-COVIDIEN/TYCO HEALTHCARE/MALLINCKRODT-T201203249

PATIENT
  Age: 3 Year
  Sex: Female
  Weight: 14.4 kg

DRUGS (2)
  1. ACETAMINOPHEN/CODEINE TABLETS [Suspect]
     Indication: TONSILLECTOMY
     Dosage: 15 mg codeine/150 mg APAP every 4-6 hrs prn
  2. CODEINE [Suspect]
     Dosage: 15 mg, 2 doses

REACTIONS (6)
  - Toxicity to various agents [Recovered/Resolved]
  - Unresponsive to stimuli [Recovered/Resolved]
  - Haematemesis [Recovered/Resolved]
  - Respiratory rate decreased [Recovered/Resolved]
  - Pyrexia [Recovered/Resolved]
  - Vomiting [None]
